FAERS Safety Report 5213514-1 (Version None)
Quarter: 2007Q1

REPORT INFORMATION
  Report Type: 
  Country: None (occurrence: None)
  Receive Date: 20070119
  Receipt Date: 20070110
  Transmission Date: 20070707
  Serious: Yes (Hospitalization)
  Sender: FDA-Public Use
  Company Number: FR-SOLVAY-00207000123

PATIENT
  Age: 58 Year
  Sex: Male

DRUGS (8)
  1. KREDEX [Concomitant]
     Indication: ILL-DEFINED DISORDER
     Dosage: DAILY DOSE:  UNKNOWN
     Route: 065
     Dates: end: 20060502
  2. PERINDOPRIL ERBUMINE [Interacting]
     Indication: ILL-DEFINED DISORDER
     Dosage: DAILY DOSE: 4 MILLIGRAM(S)
     Route: 048
     Dates: end: 20060502
  3. PERINDOPRIL ERBUMINE [Interacting]
     Dosage: DAILY DOSE: 2 MILLIGRAM(S)
     Route: 048
     Dates: start: 20060512
  4. NEXEN [Interacting]
     Indication: BACK PAIN
     Dosage: DAILY DOSE:  UNKNOWN
     Route: 048
     Dates: start: 20051101, end: 20060502
  5. FENOFIBRATE [Concomitant]
     Indication: ILL-DEFINED DISORDER
     Dosage: DAILY DOSE:  UNKNOWN
     Route: 048
     Dates: end: 20060502
  6. LASIX [Suspect]
     Indication: ILL-DEFINED DISORDER
     Dosage: DAILY DOSE: 20 MILLIGRAM(S)
     Route: 048
     Dates: end: 20060502
  7. LASIX [Suspect]
     Dosage: DAILY DOSE: 80 MILLIGRAM(S)
     Route: 048
     Dates: start: 20060503, end: 20060508
  8. LASIX [Suspect]
     Dosage: DAILY DOSE: 40 MILLIGRAM(S)
     Route: 048
     Dates: start: 20060509

REACTIONS (4)
  - ANGIOPATHY [None]
  - DRUG INTERACTION [None]
  - NEPHROPATHY [None]
  - RENAL FAILURE ACUTE [None]
